FAERS Safety Report 8732542 (Version 1)
Quarter: 2012Q4

REPORT INFORMATION
  Report Type: 
  Country: US (occurrence: US)
  Receive Date: 20120912
  Receipt Date: 20120912
  Transmission Date: 20130627
  Serious: Yes (Hospitalization)
  Sender: FDA-Public Use
  Company Number: US-ROCHE-1101628

PATIENT
  Age: 81 Year
  Sex: Male

DRUGS (1)
  1. ACTIVASE [Suspect]
     Indication: ACUTE MYOCARDIAL INFARCTION
     Route: 065

REACTIONS (4)
  - Bundle branch block right [Unknown]
  - Abdominal pain [Unknown]
  - Blood pressure diastolic decreased [Unknown]
  - Atrioventricular block second degree [Unknown]
